FAERS Safety Report 5320695-8 (Version None)
Quarter: 2007Q2

REPORT INFORMATION
  Report Type: 
  Country: None (occurrence: None)
  Receive Date: 20070509
  Receipt Date: 20070427
  Transmission Date: 20071010
  Serious: Yes (Other)
  Sender: FDA-Public Use
  Company Number: JP-PFIZER INC-2007034799

PATIENT
  Age: 88 Year
  Sex: Female

DRUGS (1)
  1. ZYVOX [Suspect]
     Dosage: DAILY DOSE:1200MG
     Route: 042
     Dates: start: 20070403, end: 20070424

REACTIONS (2)
  - HYPONATRAEMIA [None]
  - THROMBOCYTOPENIA [None]
